FAERS Safety Report 14732812 (Version 1)
Quarter: 2018Q2

REPORT INFORMATION
  Report Type: Spontaneous
  Country: US (occurrence: US)
  Receive Date: 20180409
  Receipt Date: 20180409
  Transmission Date: 20180711
  Serious: No
  Sender: FDA-Public Use
  Company Number: US-PFIZER INC-2018140221

PATIENT
  Age: 32 Year
  Sex: Female
  Weight: 83.1 kg

DRUGS (2)
  1. MEDROXYPROGESTERONE ACETATE. [Suspect]
     Active Substance: MEDROXYPROGESTERONE ACETATE
     Dosage: UNK, EVERY 3 MONTHS
     Route: 030
  2. MEDROXYPROGESTERONE ACETATE. [Suspect]
     Active Substance: MEDROXYPROGESTERONE ACETATE
     Dosage: UNK (3/4 DOSE OF 150MG/ML IM LEFT VENTROGLUTEAL/3/4 OF THE 1ML DOSE)
     Route: 030
     Dates: start: 20120523

REACTIONS (6)
  - Feeling hot [Recovered/Resolved]
  - Erythema [Recovered/Resolved]
  - Pain in extremity [Not Recovered/Not Resolved]
  - Underdose [Unknown]
  - Injection site pain [Recovered/Resolved]
  - Flushing [Recovered/Resolved]

NARRATIVE: CASE EVENT DATE: 20180403
